FAERS Safety Report 15591958 (Version 1)
Quarter: 2018Q4

REPORT INFORMATION
  Report Type: Spontaneous
  Country: CA (occurrence: CA)
  Receive Date: 20181107
  Receipt Date: 20181107
  Transmission Date: 20190205
  Serious: Yes (Other)
  Sender: FDA-Public Use
  Company Number: CA-MIDATECHPHARMA-2018-CA-000965

PATIENT
  Age: 65 Year
  Sex: Female

DRUGS (3)
  1. LEVOTHYROXINE. [Concomitant]
     Active Substance: LEVOTHYROXINE
  2. CHLOROQUINE. [Suspect]
     Active Substance: CHLOROQUINE
     Indication: PORPHYRIA NON-ACUTE
     Dosage: 250 MG DAILY
     Route: 048
  3. TAMOXIFEN (NON-SPECIFIC) [Suspect]
     Active Substance: TAMOXIFEN
     Indication: BREAST CANCER

REACTIONS (4)
  - Vitiligo [Unknown]
  - Ichthyosis [Unknown]
  - Scleroderma [Unknown]
  - Porphyria non-acute [Unknown]
